FAERS Safety Report 10153622 (Version 1)
Quarter: 2014Q2

REPORT INFORMATION
  Report Type: Spontaneous
  Country: US (occurrence: US)
  Receive Date: 20140505
  Receipt Date: 20140505
  Transmission Date: 20141212
  Serious: No
  Sender: FDA-Public Use
  Company Number: US-TEVA-479396USA

PATIENT
  Sex: Male
  Weight: 113.5 kg

DRUGS (11)
  1. FENTORA [Suspect]
     Indication: POST LAMINECTOMY SYNDROME
     Dates: start: 2006
  2. OPANA [Concomitant]
     Indication: PAIN
     Dosage: 120 MILLIGRAM DAILY;
     Route: 048
  3. BACLOFEN [Concomitant]
     Indication: PAIN
     Dosage: 90 MILLIGRAM DAILY;
     Route: 048
  4. AMITRIPTYLINE [Concomitant]
     Indication: SLEEP DISORDER
     Dosage: EVERY NIGHT
  5. METANX [Concomitant]
     Indication: NUTRITIONAL SUPPLEMENTATION
     Dosage: 4 MILLIGRAM DAILY;
  6. LIPOIC ACID [Concomitant]
     Indication: NUTRITIONAL SUPPLEMENTATION
     Dosage: 1200 MILLIGRAM DAILY;
  7. VIMPAT [Concomitant]
     Indication: BACK PAIN
     Dosage: 100 MILLIGRAM DAILY;
  8. CARVEDILOL [Concomitant]
     Indication: HYPERTENSION
     Dosage: 25 MILLIGRAM DAILY;
  9. RAMIPRIL [Concomitant]
     Indication: HYPERTENSION
     Dosage: 5 MILLIGRAM DAILY;
  10. LEVIMIR [Concomitant]
     Indication: DIABETES MELLITUS
     Dosage: 40 UNITS
     Route: 058
  11. VICTOZA [Concomitant]
     Indication: DIABETES MELLITUS
     Route: 058

REACTIONS (1)
  - Off label use [Unknown]
